FAERS Safety Report 14371341 (Version 2)
Quarter: 2018Q2

REPORT INFORMATION
  Report Type: Spontaneous
  Country: JP (occurrence: JP)
  Receive Date: 20180110
  Receipt Date: 20180409
  Transmission Date: 20180711
  Serious: Yes (Hospitalization)
  Sender: FDA-Public Use
  Company Number: JP-FERRINGPH-2017FE06465

PATIENT

DRUGS (3)
  1. JULINA [Suspect]
     Active Substance: ESTRADIOL
     Indication: PRODUCT USED FOR UNKNOWN INDICATION
     Dosage: 0.5 MG 3 TIMES DAILY
     Route: 048
     Dates: start: 20170605, end: 20170801
  2. DUPHASTON [Concomitant]
     Active Substance: DYDROGESTERONE
     Indication: ASSISTED FERTILISATION
     Dosage: 6T3?
     Route: 048
     Dates: start: 20170621
  3. LUTINUS [Suspect]
     Active Substance: PROGESTERONE
     Indication: ASSISTED FERTILISATION
     Dosage: 300 MG, 3 TIMES DAILY
     Route: 067
     Dates: start: 20170616, end: 20170804

REACTIONS (1)
  - Erythema nodosum [Recovered/Resolved]

NARRATIVE: CASE EVENT DATE: 20170728
